FAERS Safety Report 20755836 (Version 1)
Quarter: 2022Q2

REPORT INFORMATION
  Report Type: Spontaneous
  Country: US (occurrence: US)
  Receive Date: 20220427
  Receipt Date: 20220427
  Transmission Date: 20220720
  Serious: Yes (Other)
  Sender: FDA-Public Use
  Company Number: US-GSKCCFUS-Case-01356984_AE-78586

PATIENT
  Sex: Female

DRUGS (2)
  1. IMITREX [Suspect]
     Active Substance: SUMATRIPTAN SUCCINATE
     Indication: Migraine
     Dosage: UNK
  2. SUMATRIPTAN SUCCINATE [Suspect]
     Active Substance: SUMATRIPTAN SUCCINATE
     Indication: Migraine
     Dosage: UNK

REACTIONS (6)
  - Bradycardia [Unknown]
  - Platelet count decreased [Not Recovered/Not Resolved]
  - Epistaxis [Unknown]
  - Cardiac disorder [Not Recovered/Not Resolved]
  - Rash [Recovered/Resolved]
  - Drug ineffective [Unknown]
